FAERS Safety Report 13718519 (Version 3)
Quarter: 2017Q3

REPORT INFORMATION
  Report Type: Spontaneous
  Country: ES (occurrence: ES)
  Receive Date: 20170705
  Receipt Date: 20170803
  Transmission Date: 20171127
  Serious: Yes (Other)
  Sender: FDA-Public Use
  Company Number: ES-GILEAD-2017-0281010

PATIENT
  Age: 50 Year
  Sex: Male

DRUGS (2)
  1. HARVONI [Suspect]
     Active Substance: LEDIPASVIR\SOFOSBUVIR
     Indication: HEPATITIS C VIRUS TEST POSITIVE
     Dosage: UNK
     Route: 065
  2. ARANESP [Concomitant]
     Active Substance: DARBEPOETIN ALFA

REACTIONS (4)
  - General physical health deterioration [Unknown]
  - Hepatitis C [Unknown]
  - Liver transplant rejection [Unknown]
  - Drug ineffective [Unknown]
